FAERS Safety Report 7635916-6 (Version None)
Quarter: 2011Q3

REPORT INFORMATION
  Report Type: 
  Country: None (occurrence: None)
  Receive Date: 20110726
  Receipt Date: 20110712
  Transmission Date: 20111222
  Serious: Yes (Death)
  Sender: FDA-Public Use
  Company Number: NZ-MYLANLABS-2011S1014908

PATIENT
  Age: 15 Year
  Sex: Female

DRUGS (4)
  1. NITRIC OXIDE [Concomitant]
     Indication: PULMONARY HYPERTENSION
     Route: 065
  2. REMIFENTANIL [Suspect]
     Indication: SEDATION
     Route: 065
  3. MIDAZOLAM HCL [Suspect]
     Indication: SEDATION
     Route: 065
  4. MIDAZOLAM HCL [Suspect]
     Indication: PREMEDICATION
     Route: 065

REACTIONS (2)
  - CARDIAC ARREST [None]
  - PULMONARY HYPERTENSION [None]
